FAERS Safety Report 14514415 (Version 2)
Quarter: 2018Q2

REPORT INFORMATION
  Report Type: Spontaneous
  Country: FR (occurrence: FR)
  Receive Date: 20180209
  Receipt Date: 20180404
  Transmission Date: 20180711
  Serious: Yes (Hospitalization)
  Sender: FDA-Public Use
  Company Number: FR-TEVA-2018-FR-855612

PATIENT
  Age: 92 Year
  Sex: Female

DRUGS (2)
  1. ALPRAZOLAM. [Suspect]
     Active Substance: ALPRAZOLAM
     Dosage: .75 MILLIGRAM DAILY;
     Route: 065
  2. ZOLPIDEM [Suspect]
     Active Substance: ZOLPIDEM\ZOLPIDEM TARTRATE
     Dosage: 10 MILLIGRAM DAILY; (AT BEDTIME)
     Route: 065

REACTIONS (4)
  - Intentional product misuse [Recovering/Resolving]
  - Drug withdrawal syndrome [Recovering/Resolving]
  - Generalised tonic-clonic seizure [Recovered/Resolved]
  - Performance status decreased [Unknown]
